FAERS Safety Report 6571899-8 (Version None)
Quarter: 2010Q1

REPORT INFORMATION
  Report Type: 
  Country: None (occurrence: None)
  Receive Date: 20100205
  Receipt Date: 20100201
  Transmission Date: 20100710
  Serious: Yes (Other)
  Sender: FDA-Public Use
  Company Number: CA-ROCHE-665577

PATIENT
  Sex: Female

DRUGS (3)
  1. RIVOTRIL [Suspect]
     Indication: PANIC ATTACK
     Dosage: OTHER INDICATION: ANXIETY. DOSE REGIMEN: 0.5MG AT 8H00, 0.5MG AT 13H30, 1MG AT 18H30, 1MG AT 23H00
     Route: 048
     Dates: start: 19940101
  2. ANAFRANIL [Suspect]
     Indication: DRUG USE FOR UNKNOWN INDICATION
     Route: 065
     Dates: start: 19990101, end: 20091010
  3. ASPIRIN [Concomitant]
     Indication: THROMBOSIS PROPHYLAXIS

REACTIONS (6)
  - ALANINE AMINOTRANSFERASE INCREASED [None]
  - CHOLELITHIASIS [None]
  - DIABETES MELLITUS [None]
  - HYPERTENSION [None]
  - LACTOSE INTOLERANCE [None]
  - SOMNOLENCE [None]
